FAERS Safety Report 7183722-1 (Version None)
Quarter: 2010Q4

REPORT INFORMATION
  Report Type: 
  Country: None (occurrence: None)
  Receive Date: 20101220
  Receipt Date: 20101220
  Transmission Date: 20110411
  Serious: Yes (Hospitalization)
  Sender: FDA-Public Use
  Company Number: None

PATIENT
  Age: 79 Year
  Sex: Female
  Weight: 60.3 kg

DRUGS (14)
  1. COUMADIN [Suspect]
     Indication: THROMBOSIS
     Dosage: 5MG DAILY PO CHRONIC
     Route: 048
  2. BACTRIM DS [Suspect]
     Indication: URINARY TRACT INFECTION
     Dosage: ONE PO BID RECENT
     Route: 048
  3. COREG [Concomitant]
  4. DIGOXIN [Concomitant]
  5. OMEPRAZOLE [Concomitant]
  6. FLUOXETINE [Concomitant]
  7. PROMETHAZINE [Concomitant]
  8. RAMIPRIL [Concomitant]
  9. HYDROCODONE BITARTRATE + ACETAMINOPHEN [Concomitant]
  10. LORAZEPAM [Concomitant]
  11. POTASSIUM [Concomitant]
  12. ZOFRAN [Concomitant]
  13. TYLENOL [Concomitant]
  14. IMODIUM [Concomitant]

REACTIONS (5)
  - ARTHRALGIA [None]
  - HYPONATRAEMIA [None]
  - INTERNATIONAL NORMALISED RATIO INCREASED [None]
  - PROTHROMBIN TIME PROLONGED [None]
  - URINARY TRACT INFECTION [None]
